FAERS Safety Report 8830712 (Version 2)
Quarter: 2013Q1

REPORT INFORMATION
  Report Type: Spontaneous
  Country: US (occurrence: US)
  Receive Date: 20121009
  Receipt Date: 20130308
  Transmission Date: 20140127
  Serious: No
  Sender: FDA-Public Use
  Company Number: PHEH2012US019634

PATIENT
  Sex: Female
  Weight: 59.41 kg

DRUGS (21)
  1. TASIGNA [Suspect]
     Indication: CHRONIC MYELOID LEUKAEMIA
     Dosage: 150 MG, UNK
     Route: 048
     Dates: start: 201205, end: 201206
  2. CARVEDILOL [Concomitant]
     Dosage: 12.5 MG, UNK
  3. PAXIL [Concomitant]
     Dosage: 20 MG, UNK
  4. CYTOMEL [Concomitant]
     Dosage: 25 UG, UNK
  5. SYNTHROID [Concomitant]
     Dosage: 100 UG, UNK
  6. POTASSIUM [Concomitant]
     Dosage: 75 MG, UNK
  7. MAGNESIUM [Concomitant]
     Dosage: 250 MG, UNK
  8. PROBIOTICA [Concomitant]
  9. CALCIUM [Concomitant]
  10. VITAMIN D3 [Concomitant]
  11. LOVAZA [Concomitant]
     Dosage: 1 G, UNK
  12. KLONOPIN [Concomitant]
  13. MAGNESIUM OXIDE [Concomitant]
  14. PANCREATIN [Concomitant]
  15. VITAMIN C [Concomitant]
  16. GINSENG [Concomitant]
  17. ADRENAL [Concomitant]
  18. ASA [Concomitant]
  19. RESTORIL [Concomitant]
  20. COPPER [Concomitant]
  21. PROBIOTIC [Concomitant]

REACTIONS (4)
  - Anaemia [Not Recovered/Not Resolved]
  - Rash generalised [Not Recovered/Not Resolved]
  - Nausea [Not Recovered/Not Resolved]
  - Fatigue [Not Recovered/Not Resolved]
